FAERS Safety Report 7125105-6 (Version None)
Quarter: 2010Q4

REPORT INFORMATION
  Report Type: 
  Country: None (occurrence: None)
  Receive Date: 20101129
  Receipt Date: 20101026
  Transmission Date: 20110411
  Serious: Yes (Hospitalization, Other)
  Sender: FDA-Public Use
  Company Number: US-AMGEN-TCS397572

PATIENT

DRUGS (1)
  1. ENBREL [Suspect]
     Indication: RHEUMATOID ARTHRITIS
     Dosage: 50 MG, QWK
     Route: 058
     Dates: start: 20091224

REACTIONS (11)
  - ALOPECIA [None]
  - ARTHRALGIA [None]
  - CATARACT [None]
  - HYPOXIA [None]
  - LIMB DISCOMFORT [None]
  - MUSCLE FATIGUE [None]
  - MUSCULOSKELETAL DISCOMFORT [None]
  - PAIN IN EXTREMITY [None]
  - RHEUMATOID ARTHRITIS [None]
  - SINUSITIS [None]
  - URINARY TRACT INFECTION [None]
